FAERS Safety Report 6561129-5 (Version None)
Quarter: 2010Q1

REPORT INFORMATION
  Report Type: 
  Country: None (occurrence: None)
  Receive Date: 20100130
  Receipt Date: 20091002
  Transmission Date: 20100710
  Serious: No
  Sender: FDA-Public Use
  Company Number: US-ABBOTT-09P-163-0601122-00

PATIENT
  Sex: Female
  Weight: 72.64 kg

DRUGS (10)
  1. HUMIRA [Suspect]
     Indication: RHEUMATOID ARTHRITIS
     Dates: start: 20080101
  2. METHOTREXATE [Concomitant]
     Indication: RHEUMATOID ARTHRITIS
  3. PREDNISONE [Concomitant]
     Indication: RHEUMATOID ARTHRITIS
  4. NEXIUM [Concomitant]
     Indication: GASTROOESOPHAGEAL REFLUX DISEASE
  5. LYRICA [Concomitant]
     Indication: FIBROMYALGIA
  6. BENTYL [Concomitant]
     Indication: SCLERODERMA
  7. BENTYL [Concomitant]
     Indication: GASTROOESOPHAGEAL REFLUX DISEASE
  8. SINGULAIR [Concomitant]
     Indication: ASTHMA
  9. COMBIVENT [Concomitant]
     Indication: ASTHMA
     Route: 055
  10. FOLIC ACID [Concomitant]
     Indication: RHEUMATOID ARTHRITIS

REACTIONS (1)
  - INJECTION SITE PAIN [None]
